FAERS Safety Report 10197233 (Version 1)
Quarter: 2014Q2

REPORT INFORMATION
  Report Type: Spontaneous
  Country: US (occurrence: None)
  Receive Date: 20140523
  Receipt Date: 20140523
  Transmission Date: 20141212
  Serious: No
  Sender: FDA-Public Use
  Company Number: None

PATIENT
  Age: 68 Year
  Sex: Female
  Weight: 69.4 kg

DRUGS (1)
  1. RETIN-A MICRO [Suspect]
     Indication: THERAPEUTIC SKIN CARE TOPICAL
     Dates: start: 20140516, end: 20140520

REACTIONS (3)
  - Conjunctivitis [None]
  - Eye swelling [None]
  - Swelling face [None]
